FAERS Safety Report 14800308 (Version 17)
Quarter: 2021Q4

REPORT INFORMATION
  Report Type: Spontaneous
  Country: US (occurrence: US)
  Receive Date: 20180424
  Receipt Date: 20211025
  Transmission Date: 20220304
  Serious: Yes (Hospitalization, Other)
  Sender: FDA-Public Use
  Company Number: US-PFIZER INC-2018167047

PATIENT
  Age: 41 Year
  Sex: Male
  Weight: 122 kg

DRUGS (18)
  1. VFEND [Suspect]
     Active Substance: VORICONAZOLE
     Indication: Fungal infection
     Dosage: 200 MG, 2X/DAY
     Route: 048
  2. VFEND [Suspect]
     Active Substance: VORICONAZOLE
     Indication: Histoplasmosis
     Dosage: 250 MG, 2X/DAY
     Route: 048
     Dates: start: 201710
  3. VFEND [Suspect]
     Active Substance: VORICONAZOLE
     Dosage: 200 MG, 2X/DAY
     Route: 048
     Dates: start: 20180108
  4. VFEND [Suspect]
     Active Substance: VORICONAZOLE
     Dosage: 50 MG, 2X/DAY
     Route: 048
     Dates: start: 20180108
  5. VFEND [Suspect]
     Active Substance: VORICONAZOLE
     Dosage: 400 MG, 2X/DAY
     Route: 048
     Dates: start: 20181205
  6. VFEND [Suspect]
     Active Substance: VORICONAZOLE
     Dosage: 50 MG, 2X/DAY
     Route: 048
     Dates: start: 20181205
  7. VFEND [Suspect]
     Active Substance: VORICONAZOLE
     Dosage: 400 MG, 2X/DAY (TAKE WITH 50 MG PO BID TO EQUAL 450 PO BID)
     Route: 048
  8. VFEND [Suspect]
     Active Substance: VORICONAZOLE
     Dosage: 50 MG, 2X/DAY (TAKE WITH 400 MG PO BID TO EQUAL 450 PO BID)
     Route: 048
  9. VFEND [Suspect]
     Active Substance: VORICONAZOLE
     Dosage: 400 MG, 2X/DAY (TAKE WITH 50 MG EQUAL TO 450 MG, 2X A DAY)
     Route: 048
     Dates: start: 20181210
  10. VFEND [Suspect]
     Active Substance: VORICONAZOLE
     Dosage: 50 MG, 2X/DAY (TAKE WITH 400 MG, EQUAL TO 450MG 2X A DAY)
     Route: 048
     Dates: start: 20181210
  11. VFEND [Suspect]
     Active Substance: VORICONAZOLE
     Dosage: 400 MG, 2X/DAY ([TABLET (50 MG TOTAL) BY MOUTH 2 TIMES DAILY. TAKE WITH 400MG (TWO TIMES)]
     Route: 048
     Dates: start: 20190328
  12. VFEND [Suspect]
     Active Substance: VORICONAZOLE
     Dosage: 50 MG, 2X/DAY ([TABLET (50 MG TOTAL) BY MOUTH 2 TIMES DAILY. TAKE WITH 400MG (TWO TIMES)]
     Route: 048
     Dates: start: 20190328
  13. VFEND [Suspect]
     Active Substance: VORICONAZOLE
     Dosage: 450 MG, 2X/DAY
     Route: 048
  14. VFEND [Suspect]
     Active Substance: VORICONAZOLE
     Dosage: 400 MG, 2X/DAY (TAKE 1 TABLET BY MOUTH 2 TIMES DAILY, TAKEN WITH 400 MG TO EQUAL 450 MG 2X A DAY)
     Route: 048
     Dates: start: 20190418, end: 20190717
  15. VFEND [Suspect]
     Active Substance: VORICONAZOLE
     Dosage: 50 MG, 2X/DAY (TAKE 1 TABLET BY MOUTH 2 TIMES DAILY, TAKEN WITH 400 MG TO EQUAL 450 MG 2X A DAY)
     Route: 048
     Dates: start: 20190418, end: 20190717
  16. VFEND [Suspect]
     Active Substance: VORICONAZOLE
     Dosage: 450 MG, 2X/DAY(450MG IN THE MORNING AND 450MG AT NIGHT)
  17. VFEND [Suspect]
     Active Substance: VORICONAZOLE
     Dosage: 900 MG
  18. NORVASC [Concomitant]
     Active Substance: AMLODIPINE BESYLATE
     Indication: Blood pressure abnormal
     Dosage: 10 MG, 1X/DAY
     Route: 048

REACTIONS (9)
  - Meningitis [Unknown]
  - Disease recurrence [Not Recovered/Not Resolved]
  - Coccidioidomycosis [Unknown]
  - Hypersensitivity [Unknown]
  - Therapeutic product effect incomplete [Unknown]
  - Overdose [Unknown]
  - Alopecia [Not Recovered/Not Resolved]
  - Insomnia [Not Recovered/Not Resolved]
  - Memory impairment [Not Recovered/Not Resolved]

NARRATIVE: CASE EVENT DATE: 20160101
